FAERS Safety Report 17443239 (Version 1)
Quarter: 2020Q1

REPORT INFORMATION
  Report Type: Spontaneous
  Country: US (occurrence: US)
  Receive Date: 20200221
  Receipt Date: 20200221
  Transmission Date: 20200409
  Serious: No
  Sender: FDA-Public Use
  Company Number: US-BIOGEN-2014BI060587

PATIENT
  Sex: Female
  Weight: 86.26 kg

DRUGS (1)
  1. TECFIDERA [Suspect]
     Active Substance: DIMETHYL FUMARATE
     Indication: MULTIPLE SCLEROSIS
     Route: 048
     Dates: start: 2016

REACTIONS (9)
  - Abdominal pain upper [Unknown]
  - Multiple sclerosis relapse [Unknown]
  - Pain of skin [Unknown]
  - Paraesthesia [Unknown]
  - Erythema [Unknown]
  - Irritability [Unknown]
  - Flushing [Unknown]
  - Accidental overdose [Unknown]
  - Abdominal discomfort [Unknown]
